FAERS Safety Report 6043677-X (Version None)
Quarter: 2009Q1

REPORT INFORMATION
  Report Type: 
  Country: None (occurrence: None)
  Receive Date: 20090115
  Receipt Date: 20081230
  Transmission Date: 20090719
  Serious: Yes (Death)
  Sender: FDA-Public Use
  Company Number: 8040914

PATIENT
  Age: 54 Year
  Sex: Male

DRUGS (7)
  1. PREDNISOLONE [Suspect]
     Dates: start: 19890101
  2. AZATHIOPRINE [Suspect]
     Dates: start: 19890101
  3. CYCLOSPORINE [Suspect]
     Dates: start: 19890101
  4. CYCLOSPORINE [Suspect]
     Dosage: 150 MG, D
     Dates: start: 20060101
  5. INSULIN [Concomitant]
  6. MYFORTIC [Concomitant]
  7. METHYLPREDNISOLONE [Concomitant]

REACTIONS (43)
  - AGRANULOCYTOSIS [None]
  - ANAEMIA [None]
  - AORTIC DILATATION [None]
  - ARTERITIS [None]
  - BLOOD ALBUMIN DECREASED [None]
  - BLOOD IMMUNOGLOBULIN G INCREASED [None]
  - BLOOD VISCOSITY INCREASED [None]
  - CARDIAC DISORDER [None]
  - CHILLS [None]
  - COMPLICATIONS OF TRANSPLANTED KIDNEY [None]
  - CONTINUOUS HAEMODIAFILTRATION [None]
  - DEEP VEIN THROMBOSIS [None]
  - DYSPNOEA [None]
  - FALL [None]
  - FATIGUE [None]
  - FUNGAL OESOPHAGITIS [None]
  - HEPATIC ENZYME INCREASED [None]
  - HYPERCALCAEMIA [None]
  - HYPERPROTEINAEMIA [None]
  - HYPERTROPHIC CARDIOMYOPATHY [None]
  - IMMUNODEFICIENCY [None]
  - INTRACARDIAC THROMBUS [None]
  - LEFT VENTRICULAR HYPERTROPHY [None]
  - LIVER PALPABLE SUBCOSTAL [None]
  - LOSS OF CONSCIOUSNESS [None]
  - MONOCYTE PERCENTAGE INCREASED [None]
  - MULTI-ORGAN DISORDER [None]
  - MULTIPLE MYELOMA [None]
  - OEDEMA PERIPHERAL [None]
  - PAIN IN EXTREMITY [None]
  - PALPITATIONS [None]
  - PERIPHERAL EMBOLISM [None]
  - PNEUMONIA [None]
  - POST PROCEDURAL COMPLICATION [None]
  - PYREXIA [None]
  - RED BLOOD CELL SEDIMENTATION RATE INCREASED [None]
  - RENAL DISORDER [None]
  - SEPSIS [None]
  - SEPTIC SHOCK [None]
  - SINUS TACHYCARDIA [None]
  - SYNCOPE [None]
  - TREATMENT FAILURE [None]
  - TYPE 2 DIABETES MELLITUS [None]
